FAERS Safety Report 10780567 (Version 1)
Quarter: 2015Q1

REPORT INFORMATION
  Report Type: Report from Study
  Country: DK (occurrence: DK)
  Receive Date: 20150210
  Receipt Date: 20150210
  Transmission Date: 20150721
  Serious: Yes (Hospitalization)
  Sender: FDA-Public Use
  Company Number: DK-ROCHE-1532876

PATIENT
  Age: 74 Year
  Sex: Female
  Weight: 69.2 kg

DRUGS (17)
  1. RO 5479599 (ANTI-HER3 MAB) [Suspect]
     Active Substance: INVESTIGATIONAL PRODUCT
     Indication: BREAST CANCER METASTATIC
     Dosage: MOST RECENT DOSE PRIOR TO ONSET OF MALAISE: 21/JAN/2015
     Route: 042
     Dates: start: 20141111
  2. PACLITAXEL. [Suspect]
     Active Substance: PACLITAXEL
     Indication: BREAST CANCER METASTATIC
     Dosage: MOST RECENT DOSE PRIOR TO ONSET OF MALAISE: 21/JAN/2015
     Route: 042
     Dates: start: 20141111
  3. CENTYL MITE W/POTASSIUM CHLORIDE [Concomitant]
     Route: 065
     Dates: start: 20110202, end: 20141217
  4. SELENIUM [Concomitant]
     Active Substance: SELENIUM
  5. LOSARTAN [Concomitant]
     Active Substance: LOSARTAN
     Route: 065
     Dates: start: 20110621
  6. IMODIUM [Concomitant]
     Active Substance: LOPERAMIDE HYDROCHLORIDE
     Route: 065
     Dates: start: 20141128
  7. CALCIUM CARBONATE. [Concomitant]
     Active Substance: CALCIUM CARBONATE
  8. PERTUZUMAB [Suspect]
     Active Substance: PERTUZUMAB
     Indication: BREAST CANCER METASTATIC
     Dosage: MOST RECENT DOSE PRIOR TO ONSET OF MALAISE: 21/JAN/2015
     Route: 042
     Dates: start: 20141111
  9. ACETYLSALICYLSYRE [Concomitant]
     Active Substance: ASPIRIN
     Route: 065
     Dates: start: 20121011
  10. RIVOTRIL [Concomitant]
     Active Substance: CLONAZEPAM
     Route: 065
     Dates: start: 20140625
  11. PANTOPRAZOLE [Concomitant]
     Active Substance: PANTOPRAZOLE SODIUM
     Route: 065
     Dates: start: 20141128
  12. PARACETAMOL [Concomitant]
     Active Substance: ACETAMINOPHEN
     Route: 065
     Dates: start: 20120803
  13. LORAZEPAM. [Concomitant]
     Active Substance: LORAZEPAM
     Route: 065
     Dates: start: 20140507
  14. NEULASTA [Concomitant]
     Active Substance: PEGFILGRASTIM
     Route: 065
     Dates: start: 20150121, end: 20150121
  15. GABAPENTIN. [Concomitant]
     Active Substance: GABAPENTIN
     Route: 065
     Dates: start: 20130719
  16. DOMPERIDON [Concomitant]
     Active Substance: DOMPERIDONE
     Route: 065
     Dates: start: 20140507
  17. NEULASTA [Concomitant]
     Active Substance: PEGFILGRASTIM
     Route: 065
     Dates: start: 20141211, end: 20141211

REACTIONS (1)
  - Malaise [Recovered/Resolved]

NARRATIVE: CASE EVENT DATE: 201502
